FAERS Safety Report 13780367 (Version 1)
Quarter: 2017Q3

REPORT INFORMATION
  Report Type: Report from Study
  Country: MX (occurrence: MX)
  Receive Date: 20170724
  Receipt Date: 20170724
  Transmission Date: 20171127
  Serious: Yes (Hospitalization, Other)
  Sender: FDA-Public Use
  Company Number: MX-UCBSA-2017028349

PATIENT
  Age: 0 Year
  Sex: Female

DRUGS (4)
  1. TRI-VI-SOL [Concomitant]
     Indication: WEIGHT INCREASED
     Dosage: 5 GTT, ONCE DAILY (QD)
     Dates: start: 201611
  2. TRI-VI-SOL [Concomitant]
     Indication: IMMUNODEFICIENCY
  3. LEVETIRACETAM. [Suspect]
     Active Substance: LEVETIRACETAM
     Indication: SEIZURE
     Dosage: 0.5 ML, 2X/DAY (BID); STRENGTH: 100MG/ML
     Route: 048
     Dates: start: 20161020
  4. LEVETIRACETAM. [Suspect]
     Active Substance: LEVETIRACETAM
     Dosage: 0.5ML AT MORNING, 0.5ML AT AFTERNOON AND 1ML AT NIGHT , 3X/DAY (TID)
     Route: 048
     Dates: start: 2017

REACTIONS (3)
  - Hydrocephalus [Recovering/Resolving]
  - Off label use [Unknown]
  - Epilepsy [Unknown]

NARRATIVE: CASE EVENT DATE: 2016
